FAERS Safety Report 9714248 (Version 2)
Quarter: 2013Q4

REPORT INFORMATION
  Report Type: Spontaneous
  Country: ZA (occurrence: ZA)
  Receive Date: 20131126
  Receipt Date: 20131217
  Transmission Date: 20140711
  Serious: Yes (Death, Other)
  Sender: FDA-Public Use
  Company Number: ZA-ABBVIE-13P-143-1171846-00

PATIENT
  Sex: Male

DRUGS (1)
  1. HUMIRA [Suspect]
     Indication: RHEUMATOID ARTHRITIS
     Route: 058

REACTIONS (2)
  - Sleep apnoea syndrome [Fatal]
  - Leukaemia [Unknown]
